FAERS Safety Report 4803503-0 (Version None)
Quarter: 2005Q4

REPORT INFORMATION
  Report Type: 
  Country: None (occurrence: None)
  Receive Date: 20051014
  Receipt Date: 20050929
  Transmission Date: 20060501
  Serious: Yes (Hospitalization)
  Sender: FDA-Public Use
  Company Number: COT_0224_2005

PATIENT
  Age: 54 Year
  Sex: Female
  Weight: 66 kg

DRUGS (9)
  1. VENTAVIS [Suspect]
     Indication: PULMONARY HYPERTENSION
     Dosage: 5 MCG 6XD IH
     Route: 055
     Dates: start: 20000519, end: 20000925
  2. CORVASAL [Concomitant]
  3. LASILIX [Concomitant]
  4. POTASSIUM CHLORIDE [Concomitant]
  5. MOPRAL [Concomitant]
  6. OXYGEN [Concomitant]
  7. HEPARIN [Concomitant]
  8. DUPHALAC [Concomitant]
  9. PREVISCAN [Concomitant]

REACTIONS (2)
  - DRUG INEFFECTIVE [None]
  - RESPIRATORY FAILURE [None]
